FAERS Safety Report 23863867 (Version 1)
Quarter: 2024Q2

REPORT INFORMATION
  Report Type: Spontaneous
  Country: CA (occurrence: CA)
  Receive Date: 20240516
  Receipt Date: 20240516
  Transmission Date: 20240715
  Serious: No
  Sender: FDA-Public Use
  Company Number: CA-PFIZER INC-202400104754

PATIENT
  Age: 15 Year
  Sex: Female

DRUGS (2)
  1. ABRILADA [Suspect]
     Active Substance: ADALIMUMAB-AFZB
     Indication: Juvenile idiopathic arthritis
     Dosage: 40 MG, UNK
     Route: 058
     Dates: start: 20240424
  2. METHOTREXATE [Concomitant]
     Active Substance: METHOTREXATE
     Indication: Juvenile idiopathic arthritis
     Dosage: FREQUENCY UNKNOWN
     Route: 065
     Dates: start: 202308

REACTIONS (1)
  - Injection site pain [Not Recovered/Not Resolved]

NARRATIVE: CASE EVENT DATE: 20240101
